FAERS Safety Report 11242525 (Version 5)
Quarter: 2015Q4

REPORT INFORMATION
  Report Type: Report from Study
  Country: CA (occurrence: CA)
  Receive Date: 20150707
  Receipt Date: 20151030
  Transmission Date: 20160304
  Serious: Yes (Life-Threatening, Other)
  Sender: FDA-Public Use
  Company Number: CA-ROCHE-1568169

PATIENT
  Age: 57 Year
  Sex: Female
  Weight: 68.2 kg

DRUGS (18)
  1. ALENDRONATE [Concomitant]
     Active Substance: ALENDRONATE SODIUM
  2. VITAMIN D3 [Concomitant]
     Active Substance: CHOLECALCIFEROL
  3. DILTIAZEM [Concomitant]
     Active Substance: DILTIAZEM
  4. RABEPRAZOLE [Concomitant]
     Active Substance: RABEPRAZOLE
  5. GABAPENTIN. [Concomitant]
     Active Substance: GABAPENTIN
  6. LIPITOR [Concomitant]
     Active Substance: ATORVASTATIN CALCIUM
  7. ENALAPRIL [Concomitant]
     Active Substance: ENALAPRIL
  8. TRAZODONE [Concomitant]
     Active Substance: TRAZODONE HYDROCHLORIDE
  9. LEVOCARB [Concomitant]
     Active Substance: CARBIDOPA\LEVODOPA
  10. METHOTREXATE [Concomitant]
     Active Substance: METHOTREXATE
  11. ACTEMRA [Suspect]
     Active Substance: TOCILIZUMAB
     Indication: RHEUMATOID ARTHRITIS
     Route: 058
     Dates: start: 20150406, end: 2015
  12. VENTOLIN [Concomitant]
     Active Substance: ALBUTEROL SULFATE
  13. FENTANYL. [Concomitant]
     Active Substance: FENTANYL
  14. OMEGA 3 [Concomitant]
     Active Substance: OMEGA-3 FATTY ACIDS
  15. TUMS [Concomitant]
     Active Substance: CALCIUM CARBONATE
  16. ZOPICLONE [Concomitant]
     Active Substance: ZOPICLONE
  17. FOLIC ACID. [Concomitant]
     Active Substance: FOLIC ACID
  18. PLAVIX [Concomitant]
     Active Substance: CLOPIDOGREL BISULFATE

REACTIONS (15)
  - Lung carcinoma cell type unspecified stage IV [Not Recovered/Not Resolved]
  - Drug ineffective [Unknown]
  - Hand deformity [Not Recovered/Not Resolved]
  - Aspartate aminotransferase increased [Unknown]
  - Arthralgia [Unknown]
  - Gait disturbance [Unknown]
  - Pain in extremity [Not Recovered/Not Resolved]
  - Weight increased [Unknown]
  - Back pain [Unknown]
  - Musculoskeletal stiffness [Not Recovered/Not Resolved]
  - Oedema peripheral [Unknown]
  - Tendon pain [Unknown]
  - Arthritis [Not Recovered/Not Resolved]
  - Peripheral swelling [Not Recovered/Not Resolved]
  - Pulmonary pain [Unknown]

NARRATIVE: CASE EVENT DATE: 20150627
